FAERS Safety Report 10628708 (Version 1)
Quarter: 2014Q4

REPORT INFORMATION
  Report Type: Spontaneous
  Country: US (occurrence: US)
  Receive Date: 20141205
  Receipt Date: 20141205
  Transmission Date: 20150529
  Serious: No
  Sender: FDA-Public Use
  Company Number: US-BRISTOL-MYERS SQUIBB COMPANY-21561196

PATIENT
  Age: 62 Year
  Sex: Female
  Weight: 108.84 kg

DRUGS (6)
  1. ABILIFY [Suspect]
     Active Substance: ARIPIPRAZOLE
  2. LOPID [Concomitant]
     Active Substance: GEMFIBROZIL
  3. PRILOSEC [Concomitant]
     Active Substance: OMEPRAZOLE MAGNESIUM
  4. ARIMIDEX [Concomitant]
     Active Substance: ANASTROZOLE
  5. CYMBALTA [Concomitant]
     Active Substance: DULOXETINE HYDROCHLORIDE
     Indication: AMNESIA
  6. XANAX [Concomitant]
     Active Substance: ALPRAZOLAM

REACTIONS (2)
  - Increased appetite [Unknown]
  - Insomnia [Unknown]
